FAERS Safety Report 25713770 (Version 1)
Quarter: 2025Q3

REPORT INFORMATION
  Report Type: Spontaneous
  Country: EU (occurrence: EU)
  Receive Date: 20250822
  Receipt Date: 20250822
  Transmission Date: 20251020
  Serious: Yes (Death, Hospitalization, Other)
  Sender: ALKEM
  Company Number: EU-ALKEM LABORATORIES LIMITED-NO-ALKEM-2025-08782

PATIENT
  Age: 3 Decade
  Sex: Male

DRUGS (12)
  1. AMPHETAMINE SULFATE [Suspect]
     Active Substance: AMPHETAMINE SULFATE
     Indication: Product used for unknown indication
     Route: 065
  2. OLANZAPINE [Suspect]
     Active Substance: OLANZAPINE
     Indication: Product used for unknown indication
     Route: 065
  3. OXYCODONE HYDROCHLORIDE [Suspect]
     Active Substance: OXYCODONE HYDROCHLORIDE
     Indication: Product used for unknown indication
     Route: 065
  4. OXYCODONE HYDROCHLORIDE [Suspect]
     Active Substance: OXYCODONE HYDROCHLORIDE
     Route: 065
  5. PREGABALIN [Suspect]
     Active Substance: PREGABALIN
     Indication: Product used for unknown indication
     Route: 065
  6. SILDENAFIL [Suspect]
     Active Substance: SILDENAFIL
     Indication: Product used for unknown indication
     Route: 065
  7. CIPROFLOXACIN [Suspect]
     Active Substance: CIPROFLOXACIN
     Indication: Product used for unknown indication
     Route: 065
  8. ALPRAZOLAM [Suspect]
     Active Substance: ALPRAZOLAM
     Indication: Product used for unknown indication
     Route: 065
  9. 7-AMINONITRAZEPAM [Suspect]
     Active Substance: 7-AMINONITRAZEPAM
     Indication: Product used for unknown indication
     Route: 065
  10. NORDAZEPAM [Suspect]
     Active Substance: NORDAZEPAM
     Indication: Product used for unknown indication
     Route: 065
  11. DIAZEPAM [Suspect]
     Active Substance: DIAZEPAM
     Indication: Product used for unknown indication
     Route: 065
  12. ETONITAZEPYNE [Suspect]
     Active Substance: ETONITAZEPYNE
     Indication: Product used for unknown indication
     Route: 048

REACTIONS (8)
  - Unresponsive to stimuli [Fatal]
  - Loss of consciousness [Fatal]
  - Hypopnoea [Fatal]
  - Cyanosis [Fatal]
  - Respiratory depression [Fatal]
  - Toxicity to various agents [Fatal]
  - Overdose [Fatal]
  - Counterfeit product administered [Fatal]

NARRATIVE: CASE EVENT DATE: 20211201
